FAERS Safety Report 6454678-1 (Version None)
Quarter: 2009Q4

REPORT INFORMATION
  Report Type: 
  Country: None (occurrence: None)
  Receive Date: 20091118
  Receipt Date: 20091106
  Transmission Date: 20100525
  Serious: Yes (Other)
  Sender: FDA-Public Use
  Company Number: 2009AP004038

PATIENT
  Age: 49 Year
  Sex: Female

DRUGS (2)
  1. TIMONIL (CARBAMAZEPINE) /GFR/ [Suspect]
     Dosage: PO
     Route: 048
  2. VALPROATE SODIUM [Suspect]

REACTIONS (1)
  - GLAUCOMA [None]
